FAERS Safety Report 24749010 (Version 1)
Quarter: 2024Q4

REPORT INFORMATION
  Report Type: Spontaneous
  Country: US (occurrence: US)
  Receive Date: 20241218
  Receipt Date: 20241218
  Transmission Date: 20250115
  Serious: No
  Sender: MYLAN
  Company Number: US-MYLANLABS-2024M1110629

PATIENT
  Age: 73 Year
  Sex: Female
  Weight: 60.78 kg

DRUGS (4)
  1. ESTRADIOL [Suspect]
     Active Substance: ESTRADIOL
     Indication: Vaginal disorder
     Dosage: 1 GRAM, QD (PER DAY)
     Route: 067
     Dates: start: 20241127
  2. SIMVASTATIN [Concomitant]
     Active Substance: SIMVASTATIN
     Indication: Blood cholesterol
     Dosage: 40 MILLIGRAM, QD (ONCE A DAY)
     Route: 048
  3. MINERALS\VITAMINS [Concomitant]
     Active Substance: MINERALS\VITAMINS
     Indication: Supplementation therapy
     Dosage: 2 DOSAGE FORM, QD (MINIGELS, 2 PER DAY)
     Route: 048
  4. VITAMIN D3 [Concomitant]
     Active Substance: CHOLECALCIFEROL
     Indication: Vitamin supplementation
     Dosage: 50 MICROGRAM, QD (PER DAY)
     Route: 048

REACTIONS (4)
  - Nail disorder [Not Recovered/Not Resolved]
  - Onychalgia [Not Recovered/Not Resolved]
  - Dry skin [Not Recovered/Not Resolved]
  - Nail bed bleeding [Not Recovered/Not Resolved]

NARRATIVE: CASE EVENT DATE: 20241201
